FAERS Safety Report 7319384-X (Version None)
Quarter: 2011Q1

REPORT INFORMATION
  Report Type: 
  Country: None (occurrence: None)
  Receive Date: 20110228
  Receipt Date: 20100301
  Transmission Date: 20110831
  Serious: No
  Sender: FDA-Public Use
  Company Number: A0847368A

PATIENT
  Age: 55 Year
  Sex: Female

DRUGS (6)
  1. CLONAZEPAM [Concomitant]
  2. PREMARIN [Concomitant]
  3. BENTYL [Concomitant]
  4. LAMICTAL [Suspect]
     Dosage: 100MG TWICE PER DAY
     Route: 048
     Dates: start: 20090901
  5. PAXIL [Concomitant]
  6. FISH OIL [Concomitant]

REACTIONS (6)
  - HEADACHE [None]
  - CONFUSIONAL STATE [None]
  - AMNESIA [None]
  - PSYCHOMOTOR HYPERACTIVITY [None]
  - SPEECH DISORDER [None]
  - FALL [None]
